FAERS Safety Report 8901141 (Version 3)
Quarter: 2012Q4

REPORT INFORMATION
  Report Type: Report from Study
  Country: CA (occurrence: CA)
  Receive Date: 20121109
  Receipt Date: 20121218
  Transmission Date: 20130627
  Serious: Yes (Hospitalization)
  Sender: FDA-Public Use
  Company Number: CA-ROCHE-1153580

PATIENT
  Sex: Male
  Weight: 97.5 kg

DRUGS (9)
  1. TOCILIZUMAB [Suspect]
     Indication: RHEUMATOID ARTHRITIS
     Route: 042
     Dates: start: 20120614
  2. ARAVA [Concomitant]
     Route: 048
  3. TYLENOL #3 (CANADA) [Concomitant]
     Route: 065
  4. VIMOVO [Concomitant]
  5. PREDNISONE [Concomitant]
  6. HYDROCHLOROTHIAZIDE [Concomitant]
  7. D-FORTE [Concomitant]
  8. NORVASC [Concomitant]
  9. AMLODIPINE [Concomitant]

REACTIONS (3)
  - Nephrolithiasis [Not Recovered/Not Resolved]
  - Haematuria [Not Recovered/Not Resolved]
  - Cerebrovascular accident [Unknown]
